FAERS Safety Report 22215346 (Version 1)
Quarter: 2023Q2

REPORT INFORMATION
  Report Type: Spontaneous
  Country: US (occurrence: US)
  Receive Date: 20230415
  Receipt Date: 20230415
  Transmission Date: 20230722
  Serious: No
  Sender: FDA-Public Use
  Company Number: US-JNJFOC-20190626733

PATIENT
  Age: 75 Year
  Sex: Female

DRUGS (1)
  1. MENS ROGAINE EXTRA STRENGTH [Suspect]
     Active Substance: MINOXIDIL
     Indication: Alopecia
     Dosage: HALF CUP
     Route: 061
     Dates: start: 20190611, end: 20190617

REACTIONS (2)
  - Product use issue [Unknown]
  - Intentional product misuse [Unknown]
